FAERS Safety Report 11279373 (Version 1)
Quarter: 2015Q3

REPORT INFORMATION
  Report Type: Spontaneous
  Country: US (occurrence: US)
  Receive Date: 20150717
  Receipt Date: 20150717
  Transmission Date: 20151125
  Serious: No
  Sender: FDA-Public Use
  Company Number: US-TEVA-578495USA

PATIENT
  Sex: Female
  Weight: 85.81 kg

DRUGS (17)
  1. HYDROMORPHONE [Concomitant]
     Active Substance: HYDROMORPHONE
     Indication: BREAKTHROUGH PAIN
  2. PREDNISONE. [Concomitant]
     Active Substance: PREDNISONE
     Indication: BRAIN NEOPLASM
  3. ZOFRAN [Concomitant]
     Active Substance: ONDANSETRON HYDROCHLORIDE
     Indication: ADDISON^S DISEASE
  4. SYNTHROID [Concomitant]
     Active Substance: LEVOTHYROXINE SODIUM
  5. SOLU-CORTEF [Concomitant]
     Active Substance: HYDROCORTISONE SODIUM SUCCINATE
     Indication: ADDISON^S DISEASE
  6. PREDNISONE. [Concomitant]
     Active Substance: PREDNISONE
     Indication: INTRACRANIAL PRESSURE INCREASED
  7. CABERGOLINE. [Concomitant]
     Active Substance: CABERGOLINE
  8. LYRICA [Concomitant]
     Active Substance: PREGABALIN
  9. PREDNISONE. [Concomitant]
     Active Substance: PREDNISONE
     Indication: ARNOLD-CHIARI MALFORMATION
  10. PREDNISONE. [Concomitant]
     Active Substance: PREDNISONE
     Indication: PITUITARY TUMOUR
  11. PREDNISONE. [Concomitant]
     Active Substance: PREDNISONE
     Indication: CYST
  12. PREDNISONE. [Concomitant]
     Active Substance: PREDNISONE
     Indication: IMMUNOGLOBULINS ABNORMAL
  13. OXYCONTIN [Concomitant]
     Active Substance: OXYCODONE HYDROCHLORIDE
     Indication: PAIN
  14. ROBAXIN [Concomitant]
     Active Substance: METHOCARBAMOL
  15. FENTORA [Suspect]
     Active Substance: FENTANYL CITRATE
     Route: 002
     Dates: start: 2015
  16. PREDNISONE. [Concomitant]
     Active Substance: PREDNISONE
     Indication: ADDISON^S DISEASE
  17. FENTORA [Suspect]
     Active Substance: FENTANYL CITRATE
     Indication: PAIN
     Route: 002
     Dates: start: 201501

REACTIONS (6)
  - Gingival erythema [Not Recovered/Not Resolved]
  - Oral mucosal exfoliation [Not Recovered/Not Resolved]
  - Blood iron decreased [Not Recovered/Not Resolved]
  - Gingival pain [Not Recovered/Not Resolved]
  - Immunoglobulins decreased [Not Recovered/Not Resolved]
  - Paraesthesia oral [Not Recovered/Not Resolved]

NARRATIVE: CASE EVENT DATE: 2015
